FAERS Safety Report 8175093-9 (Version None)
Quarter: 2012Q1

REPORT INFORMATION
  Report Type: 
  Country: None (occurrence: None)
  Receive Date: 20120229
  Receipt Date: 20120222
  Transmission Date: 20120608
  Serious: No
  Sender: FDA-Public Use
  Company Number: PHHY2012JP006834

PATIENT
  Age: 82 Year
  Sex: Female

DRUGS (4)
  1. EXFORGE [Suspect]
     Dosage: 1 DF, DAILY
     Route: 048
  2. ZOLPIDEM [Suspect]
     Dosage: 10 MG, DAILY
     Route: 048
  3. DEPAS [Suspect]
     Dosage: 3 MG, DAILY
     Route: 048
  4. DEPAS [Suspect]
     Dosage: 1.5 MG, DAILY
     Route: 048

REACTIONS (2)
  - DIZZINESS [None]
  - HEADACHE [None]
